FAERS Safety Report 8743582 (Version 2)
Quarter: 2012Q4

REPORT INFORMATION
  Report Type: 
  Country: NZ (occurrence: NZ)
  Receive Date: 20120824
  Receipt Date: 20121011
  Transmission Date: 20130627
  Serious: Yes (Disabling, Other)
  Sender: FDA-Public Use
  Company Number: NZ-PFIZER INC-2012205273

PATIENT
  Age: 80 Year

DRUGS (5)
  1. LIPITOR [Suspect]
     Indication: ARTERIOSCLEROSIS
     Dosage: 10 mg, 1x/day
     Route: 048
     Dates: start: 20110922, end: 20111027
  2. LIPITOR [Suspect]
     Indication: BLOOD CHOLESTEROL INCREASED
     Dosage: 10 mg, 1x/day
     Dates: start: 20120516, end: 20120528
  3. AMITRIPTYLINE [Concomitant]
     Indication: SLEEP DISORDER
     Dosage: 10 mg, UNK
     Route: 048
  4. INHIBACE [Concomitant]
     Indication: BLOOD PRESSURE
     Dosage: 2.5 mg, UNK
     Route: 048
  5. ACETYLSALICYLIC ACID [Concomitant]
     Indication: CARDIOVASCULAR DISORDER
     Dosage: 100 mg, UNK
     Route: 048

REACTIONS (4)
  - Hepatitis viral [Recovered/Resolved]
  - Hepatic enzyme increased [Recovered/Resolved]
  - Fatigue [Recovered/Resolved]
  - Nausea [Recovered/Resolved]
